FAERS Safety Report 4524513-7 (Version None)
Quarter: 2004Q4

REPORT INFORMATION
  Report Type: 
  Country: None (occurrence: None)
  Receive Date: 20041117
  Receipt Date: 20031210
  Transmission Date: 20050328
  Serious: Yes (Other)
  Sender: FDA-Public Use
  Company Number: US-JNJFOC-20031203086

PATIENT

DRUGS (1)
  1. LEVAQUIN [Suspect]

REACTIONS (1)
  - TORSADE DE POINTES [None]
